FAERS Safety Report 16405772 (Version 2)
Quarter: 2019Q2

REPORT INFORMATION
  Report Type: Spontaneous
  Country: US (occurrence: US)
  Receive Date: 20190607
  Receipt Date: 20190620
  Transmission Date: 20190711
  Serious: Yes (Other)
  Sender: FDA-Public Use
  Company Number: US-ASTRAZENECA-2018SF26557

PATIENT
  Age: 9493 Day
  Sex: Male

DRUGS (27)
  1. AMOXICILLIN. [Concomitant]
     Active Substance: AMOXICILLIN
  2. CYCLOBENZAPRINE. [Concomitant]
     Active Substance: CYCLOBENZAPRINE
  3. RANITIDINE. [Concomitant]
     Active Substance: RANITIDINE
  4. LISINOPRIL. [Concomitant]
     Active Substance: LISINOPRIL
  5. TRAZODONE [Concomitant]
     Active Substance: TRAZODONE HYDROCHLORIDE
  6. HYDROCODONE [Concomitant]
     Active Substance: HYDROCODONE
  7. DEXILANT [Suspect]
     Active Substance: DEXLANSOPRAZOLE
     Route: 065
     Dates: start: 200601, end: 201601
  8. BIAXIN [Concomitant]
     Active Substance: CLARITHROMYCIN
  9. AZITHROMYCIN ANHYDROUS. [Concomitant]
     Active Substance: AZITHROMYCIN ANHYDROUS
  10. BUDESONIDE. [Concomitant]
     Active Substance: BUDESONIDE
  11. NEXIUM [Suspect]
     Active Substance: ESOMEPRAZOLE MAGNESIUM
     Route: 048
     Dates: start: 20060101, end: 20160101
  12. PROTONIX [Suspect]
     Active Substance: PANTOPRAZOLE SODIUM
     Route: 065
     Dates: start: 200601, end: 201601
  13. NEXIUM [Suspect]
     Active Substance: ESOMEPRAZOLE MAGNESIUM
     Route: 048
     Dates: start: 200601, end: 201601
  14. PRISTIQ EXTENDED-RELEASE [Concomitant]
     Active Substance: DESVENLAFAXINE SUCCINATE
  15. ONDASETRON [Concomitant]
     Active Substance: ONDANSETRON
  16. NEXIUM 24HR [Suspect]
     Active Substance: ESOMEPRAZOLE MAGNESIUM
     Route: 048
     Dates: start: 200601, end: 201601
  17. DEXILANT [Suspect]
     Active Substance: DEXLANSOPRAZOLE
     Route: 065
     Dates: start: 20151205, end: 20151205
  18. PAROXETINE. [Concomitant]
     Active Substance: PAROXETINE
  19. OXYCODONE [Concomitant]
     Active Substance: OXYCODONE
  20. HYDROCHLOROTHIAZIDE. [Concomitant]
     Active Substance: HYDROCHLOROTHIAZIDE
  21. DEPAKOTE [Concomitant]
     Active Substance: DIVALPROEX SODIUM
  22. AMITRIPTYLINE HYDROCHLORIDE. [Concomitant]
     Active Substance: AMITRIPTYLINE HYDROCHLORIDE
  23. LORATADINE. [Concomitant]
     Active Substance: LORATADINE
  24. PROTONIX [Suspect]
     Active Substance: PANTOPRAZOLE SODIUM
     Route: 065
     Dates: start: 20060101, end: 20160101
  25. ATENOLOL. [Concomitant]
     Active Substance: ATENOLOL
  26. FEXOFENADINE HYDROCHLORIDE. [Concomitant]
     Active Substance: FEXOFENADINE HYDROCHLORIDE
  27. NAPROXEN. [Concomitant]
     Active Substance: NAPROXEN

REACTIONS (6)
  - End stage renal disease [Unknown]
  - Renal failure [Unknown]
  - Acute kidney injury [Recovered/Resolved]
  - Tubulointerstitial nephritis [Unknown]
  - Chronic kidney disease [Unknown]
  - Renal injury [Unknown]

NARRATIVE: CASE EVENT DATE: 20140501
